FAERS Safety Report 7602771-X (Version None)
Quarter: 2011Q3

REPORT INFORMATION
  Report Type: 
  Country: None (occurrence: None)
  Receive Date: 20110712
  Receipt Date: 20110705
  Transmission Date: 20111222
  Serious: Yes (Hospitalization)
  Sender: FDA-Public Use
  Company Number: JP-ASTELLAS-2011JP003622

PATIENT
  Sex: Female
  Weight: 46.1 kg

DRUGS (3)
  1. AMLODIPINE [Concomitant]
     Indication: HYPERTENSION
     Dosage: 5 MG, UID/QD
     Route: 048
     Dates: start: 20070607, end: 20110527
  2. MIGLITOL [Concomitant]
     Indication: TYPE 2 DIABETES MELLITUS
     Dosage: 50 MG, TID
     Route: 048
     Dates: start: 20110121, end: 20110527
  3. ASP1941 [Suspect]
     Indication: TYPE 2 DIABETES MELLITUS
     Dosage: 50 MG, UID/QD
     Route: 048
     Dates: start: 20110407, end: 20110527

REACTIONS (2)
  - PYELONEPHRITIS [None]
  - CALCULUS URETERIC [None]
